FAERS Safety Report 9719870 (Version 1)
Quarter: 2013Q4

REPORT INFORMATION
  Report Type: Report from Study
  Country: KR (occurrence: KR)
  Receive Date: 20131128
  Receipt Date: 20131128
  Transmission Date: 20140711
  Serious: Yes (Hospitalization)
  Sender: FDA-Public Use
  Company Number: KR-SA-2013SA121032

PATIENT
  Age: 50 Year
  Sex: Female
  Weight: 73 kg

DRUGS (2)
  1. LANTUS [Suspect]
     Indication: DIABETES MELLITUS
     Dosage: DOSE:16 UNIT(S)
     Route: 058
  2. NOVORAPID [Suspect]
     Indication: DIABETES MELLITUS
     Dosage: DOSE:8 UNIT(S)
     Route: 058

REACTIONS (2)
  - Urinary tract infection [Recovered/Resolved]
  - Hyperthermia [Recovered/Resolved]
